FAERS Safety Report 8473694-1 (Version None)
Quarter: 2012Q2

REPORT INFORMATION
  Report Type: 
  Country: None (occurrence: None)
  Receive Date: 20120628
  Receipt Date: 20110926
  Transmission Date: 20120825
  Serious: Yes (Death)
  Sender: FDA-Public Use
  Company Number: US-MYLANLABS-2011S1018900

PATIENT
  Age: 61 Year
  Sex: Female
  Weight: 96.16 kg

DRUGS (5)
  1. CLONAZEPAM [Concomitant]
  2. CLOZAPINE [Suspect]
     Indication: SCHIZOAFFECTIVE DISORDER
     Route: 048
  3. PROZAC [Concomitant]
  4. AMANTADINE HCL [Concomitant]
  5. TRAZODONE HCL [Concomitant]

REACTIONS (1)
  - DEATH [None]
